FAERS Safety Report 4694951-0 (Version None)
Quarter: 2005Q2

REPORT INFORMATION
  Report Type: 
  Country: None (occurrence: None)
  Receive Date: 20050617
  Receipt Date: 20050408
  Transmission Date: 20051028
  Serious: Yes (Other)
  Sender: FDA-Public Use
  Company Number: US-2005-003202

PATIENT
  Age: 62 Year
  Sex: Male

DRUGS (6)
  1. FLUDARA [Suspect]
     Indication: CHRONIC LYMPHOCYTIC LEUKAEMIA
     Dosage: 25 MG/M2, X3DAYS, INTRAVENOUS
     Route: 042
     Dates: start: 20050214
  2. CYCLOPHOSPHAMIDE [Suspect]
     Indication: CHRONIC LYMPHOCYTIC LEUKAEMIA
     Dosage: 250 MG/M2, X3DAYS, INTRAVENOUS
     Route: 042
     Dates: start: 20050214
  3. BACTRIM DS [Concomitant]
  4. ALLOPURINOL [Concomitant]
  5. ACYCLOVIR [Concomitant]
  6. RITUXIMAB (RITUXIMAB) [Suspect]
     Indication: CHRONIC LYMPHOCYTIC LEUKAEMIA
     Dosage: 375 MG/M2, DAY 1, INTRAVENOUS
     Route: 042
     Dates: start: 20050214, end: 20050214

REACTIONS (2)
  - ANTIBODY TEST POSITIVE [None]
  - HAEMOLYTIC ANAEMIA [None]
